FAERS Safety Report 5964919-2 (Version None)
Quarter: 2008Q4

REPORT INFORMATION
  Report Type: 
  Country: None (occurrence: None)
  Receive Date: 20081125
  Receipt Date: 20081112
  Transmission Date: 20090506
  Serious: Yes (Hospitalization, Other)
  Sender: FDA-Public Use
  Company Number: PHHO2008US13479

PATIENT
  Sex: Female
  Weight: 98.8 kg

DRUGS (14)
  1. ZOMETA [Suspect]
     Dosage: UNK
     Route: 042
     Dates: start: 20080501
  2. SUNITINIB MALATE [Concomitant]
     Indication: BREAST CANCER METASTATIC
     Dosage: 25 MG DAILY
     Route: 048
     Dates: start: 20080623, end: 20080714
  3. TAXOL [Concomitant]
     Indication: BREAST CANCER METASTATIC
     Dosage: 144 MG
     Dates: start: 20080623
  4. FENTANYL [Concomitant]
  5. ALLOPURINOL [Concomitant]
  6. EVAC-Q-KIT [Concomitant]
  7. PROMETHAZINE [Concomitant]
  8. PREVACID [Concomitant]
  9. ATIVAN [Concomitant]
  10. ALOXI [Concomitant]
  11. DECADRON [Concomitant]
  12. BENADRYL [Concomitant]
  13. CIMETIDINE [Concomitant]
  14. EMEND [Concomitant]

REACTIONS (12)
  - AZOTAEMIA [None]
  - BLOOD HUMAN CHORIONIC GONADOTROPIN INCREASED [None]
  - BONE PAIN [None]
  - CONSTIPATION [None]
  - DYSPNOEA [None]
  - HYPERURICAEMIA [None]
  - HYPOCALCAEMIA [None]
  - LIVER FUNCTION TEST ABNORMAL [None]
  - MUSCLE SPASMS [None]
  - NAUSEA [None]
  - PARAESTHESIA [None]
  - PELVIC FLUID COLLECTION [None]
